FAERS Safety Report 7691841-6 (Version None)
Quarter: 2011Q3

REPORT INFORMATION
  Report Type: 
  Country: None (occurrence: None)
  Receive Date: 20110818
  Receipt Date: 20110808
  Transmission Date: 20111222
  Serious: No
  Sender: FDA-Public Use
  Company Number: US-JNJFOC-20110805067

PATIENT
  Age: 41 Year
  Sex: Female

DRUGS (2)
  1. INVEGA [Suspect]
     Indication: AFFECTIVE DISORDER
     Route: 048
     Dates: start: 20110602, end: 20110630
  2. INVEGA [Suspect]
     Route: 048
     Dates: start: 20110522, end: 20110602

REACTIONS (1)
  - LACTATION PUERPERAL INCREASED [None]
